FAERS Safety Report 5259959-5 (Version None)
Quarter: 2007Q1

REPORT INFORMATION
  Report Type: 
  Country: None (occurrence: None)
  Receive Date: 20070309
  Receipt Date: 20070228
  Transmission Date: 20070707
  Serious: Yes (Congenital Anomaly)
  Sender: FDA-Public Use
  Company Number: 8014771

PATIENT
  Sex: Male
  Weight: 2.9 kg

DRUGS (4)
  1. LAMOTRIGINE [Suspect]
     Indication: PARTIAL SEIZURES
     Dosage: 300MG PER DAY
  2. CARBAMAZEPINE [Suspect]
     Indication: PARTIAL SEIZURES
     Dosage: 400MG PER DAY
  3. CLOBAZAM [Suspect]
     Indication: PARTIAL SEIZURES
     Dosage: 10MG PER DAY
  4. KEPPRA [Suspect]
     Indication: EPILEPSY
     Dosage: 3000MG PER DAY

REACTIONS (1)
  - PILONIDAL CYST CONGENITAL [None]
